FAERS Safety Report 10086354 (Version 1)
Quarter: 2014Q2

REPORT INFORMATION
  Report Type: Spontaneous
  Country: US (occurrence: None)
  Receive Date: 20140417
  Receipt Date: 20140417
  Transmission Date: 20141212
  Serious: Yes (Other)
  Sender: FDA-Public Use
  Company Number: None

PATIENT
  Age: 13 Year
  Sex: Male
  Weight: 39.01 kg

DRUGS (1)
  1. METHYLPHENIDATE ER 18 MG [Suspect]
     Indication: ATTENTION DEFICIT/HYPERACTIVITY DISORDER
     Dosage: 1 PILL?ONCE DAILY ?TAKEN BY MOUTH
     Route: 048
     Dates: start: 20140411, end: 20140414

REACTIONS (6)
  - Psychotic disorder [None]
  - Feeling abnormal [None]
  - Paranoia [None]
  - Hallucination, auditory [None]
  - Abnormal behaviour [None]
  - Crying [None]
